APPROVED DRUG PRODUCT: ADENOSINE
Active Ingredient: ADENOSINE
Strength: 3MG/ML
Dosage Form/Route: INJECTABLE;INJECTION
Application: A076500 | Product #001 | TE Code: AP
Applicant: HIKMA PHARMACEUTICALS USA INC
Approved: Jun 16, 2004 | RLD: No | RS: No | Type: RX